FAERS Safety Report 10758561 (Version 1)
Quarter: 2015Q1

REPORT INFORMATION
  Report Type: Spontaneous
  Country: NZ (occurrence: NZ)
  Receive Date: 20150203
  Receipt Date: 20150203
  Transmission Date: 20150721
  Serious: Yes (Death)
  Sender: FDA-Public Use
  Company Number: NZ-009507513-1501NZL011143

PATIENT
  Age: 72 Year
  Sex: Female

DRUGS (2)
  1. SIMVASTATIN. [Suspect]
     Active Substance: SIMVASTATIN
     Dosage: 80 MG, UNK (HIGH DOSE)
     Route: 048
     Dates: end: 200912
  2. ERYTHROMYCIN. [Interacting]
     Active Substance: ERYTHROMYCIN
     Dosage: ROUTE: SY; ENDED: S TERM

REACTIONS (4)
  - Rhabdomyolysis [Fatal]
  - Pulmonary oedema [Fatal]
  - Drug interaction [Fatal]
  - Acute kidney injury [Fatal]

NARRATIVE: CASE EVENT DATE: 201002
